FAERS Safety Report 16122251 (Version 1)
Quarter: 2019Q1

REPORT INFORMATION
  Report Type: Report from Study
  Country: DE (occurrence: DE)
  Receive Date: 20190327
  Receipt Date: 20190327
  Transmission Date: 20190418
  Serious: Yes (Hospitalization)
  Sender: FDA-Public Use
  Company Number: DE-ACCORD-107631

PATIENT
  Age: 71 Year
  Sex: Female
  Weight: 60 kg

DRUGS (7)
  1. FOLINIC ACID [Suspect]
     Active Substance: LEUCOVORIN
     Indication: BREAST CANCER
     Dosage: ALSO RECEIVED 640 MG FROM 30-APR-2013.
     Route: 042
     Dates: start: 20130702
  2. IRINOTECAN [Suspect]
     Active Substance: IRINOTECAN
     Indication: BREAST CANCER
     Dosage: DAILY DOSE: 280 MG MILLGRAM(S) EVERY 2 WEEKS, 14-MAY-2013.
     Route: 042
     Dates: start: 20130430
  3. MCP DROPS [Concomitant]
     Indication: VOMITING
     Dosage: DAILY DOSE: 90 GTT DROP(S) EVERY DAYS, 30  GTT DROP(S)
     Route: 048
  4. PANTOPRAZOLE [Concomitant]
     Active Substance: PANTOPRAZOLE
     Indication: ULCER
     Dosage: DAILY DOSE: 80 MG MILLGRAM(S) EVERY DAYS, ALSO RECEIVED 40 MG DOSE.
     Route: 048
  5. BEVACIZUMAB. [Suspect]
     Active Substance: BEVACIZUMAB
     Indication: BREAST CANCER
     Dosage: DAILY DOSE: 300 MG MILLGRAM(S) EVERY 2 WEEKS
     Route: 042
     Dates: start: 20130430, end: 20130430
  6. METOHEXAL (GERMANY) [Concomitant]
     Dosage: DAILY DOSE: 95 MG MILLGRAM(S) EVERY DAYS, ALSO RECEIVED AS 47.5 MG DOSE.
     Route: 048
  7. FLUOROURACIL. [Suspect]
     Active Substance: FLUOROURACIL
     Indication: BREAST CANCER
     Dosage: 500?MG?FROM 02-JUL-2013,  3050?MG FROM 05-DEC-2013 TO 05-DEC-2013 IV BOLUS
     Route: 040
     Dates: start: 20130716, end: 20130718

REACTIONS (5)
  - Gastrointestinal haemorrhage [Recovered/Resolved]
  - Cholelithiasis [Recovered/Resolved]
  - Abdominal pain [Recovered/Resolved]
  - Anaemia [Recovered/Resolved]
  - Cholangitis [Recovered/Resolved]

NARRATIVE: CASE EVENT DATE: 20130430
